FAERS Safety Report 4804170-2 (Version None)
Quarter: 2005Q4

REPORT INFORMATION
  Report Type: 
  Country: None (occurrence: None)
  Receive Date: 20051014
  Receipt Date: 20051007
  Transmission Date: 20060501
  Serious: Yes (Hospitalization, Other)
  Sender: FDA-Public Use
  Company Number: KII-2005-0019005

PATIENT
  Age: 52 Year
  Sex: Female

DRUGS (6)
  1. OXYCONTIN [Suspect]
     Indication: PAIN
     Dosage: ORAL
     Route: 048
  2. MORPHINE SULFATE [Suspect]
     Dosage: ORAL
     Route: 048
  3. CALCIUM CHANNEL BLOCKERS [Suspect]
     Dosage: ORAL
     Route: 048
  4. SSRI [Suspect]
     Dosage: ORAL
     Route: 048
  5. ANTIEPILEPTICS [Suspect]
     Dosage: ORAL
     Route: 048
  6. BENZODIAZEPINE DERIVATIVES [Suspect]

REACTIONS (8)
  - ACCIDENTAL OVERDOSE [None]
  - CORONARY ARTERY OCCLUSION [None]
  - HYPOTENSION [None]
  - NAUSEA [None]
  - SOMNOLENCE [None]
  - TACHYCARDIA [None]
  - TROPONIN INCREASED [None]
  - VOMITING [None]
